FAERS Safety Report 25867304 (Version 1)
Quarter: 2025Q4

REPORT INFORMATION
  Report Type: Spontaneous
  Country: CN (occurrence: CN)
  Receive Date: 20251001
  Receipt Date: 20251001
  Transmission Date: 20260118
  Serious: Yes (Other)
  Sender: ROCHE
  Company Number: CN-ROCHE-10000399150

PATIENT
  Age: 65 Year
  Sex: Female

DRUGS (3)
  1. TRASTUZUMAB [Suspect]
     Active Substance: TRASTUZUMAB
     Indication: Breast cancer
     Route: 058
     Dates: start: 20250917, end: 20250917
  2. PYROTINIB MALEATE [Suspect]
     Active Substance: PYROTINIB MALEATE
     Indication: Breast cancer
     Route: 048
     Dates: start: 20250917, end: 20250920
  3. DOCETAXEL [Suspect]
     Active Substance: DOCETAXEL
     Indication: Breast cancer
     Route: 042
     Dates: start: 20250917, end: 20250917

REACTIONS (2)
  - Myelosuppression [Not Recovered/Not Resolved]
  - Neutropenia [Not Recovered/Not Resolved]

NARRATIVE: CASE EVENT DATE: 20250923
